FAERS Safety Report 4324536-7 (Version None)
Quarter: 2004Q1

REPORT INFORMATION
  Report Type: 
  Country: None (occurrence: None)
  Receive Date: 20040325
  Receipt Date: 20040325
  Transmission Date: 20041129
  Serious: Yes (Hospitalization)
  Sender: FDA-Public Use
  Company Number: None

PATIENT
  Age: 50 Year
  Sex: Male
  Weight: 67.3 kg

DRUGS (5)
  1. VELCADE [Suspect]
     Indication: MANTLE CELL LYMPHOMA
     Dosage: 2.3 MG, DAY 1, 4, 8 + 11 SIDE ARM IV INJECTION (DAY 11)
     Route: 042
     Dates: start: 20040304
  2. IRON [Concomitant]
  3. SULCRALFATE [Concomitant]
  4. LASIX [Concomitant]
  5. OXCODYNE [Concomitant]

REACTIONS (4)
  - ABDOMINAL PAIN [None]
  - CONDITION AGGRAVATED [None]
  - SPLENECTOMY [None]
  - SPLENOMEGALY [None]
